FAERS Safety Report 9562258 (Version 1)
Quarter: 2013Q3

REPORT INFORMATION
  Report Type: Spontaneous
  Country: DE (occurrence: DE)
  Receive Date: 20130927
  Receipt Date: 20130927
  Transmission Date: 20140515
  Serious: Yes (Death, Other)
  Sender: FDA-Public Use
  Company Number: DE-PFIZER INC-2013276913

PATIENT
  Age: 49 Year
  Sex: Male

DRUGS (2)
  1. HEPARIN SODIUM [Suspect]
     Indication: COAGULOPATHY
     Dosage: UNK
  2. ACETYLSALICYLIC ACID [Concomitant]
     Indication: COAGULOPATHY
     Dosage: UNK

REACTIONS (2)
  - Heparin-induced thrombocytopenia [Fatal]
  - Thrombosis [Fatal]
